FAERS Safety Report 25729715 (Version 1)
Quarter: 2025Q3

REPORT INFORMATION
  Report Type: Report from Study
  Country: GB (occurrence: GB)
  Receive Date: 20250827
  Receipt Date: 20250827
  Transmission Date: 20251020
  Serious: Yes (Other)
  Sender: ABBVIE
  Company Number: GB-ABBVIE-6432817

PATIENT
  Age: 82 Year
  Sex: Female

DRUGS (1)
  1. SKYRIZI [Suspect]
     Active Substance: RISANKIZUMAB-RZAA
     Indication: Crohn^s disease
     Dosage: SKYRIZI 360MG/2.4ML. DOSE FORM: SOLUTION FOR INJECTION CARTRIDGE ON-BODY DEVICE
     Route: 058
     Dates: start: 20250707

REACTIONS (5)
  - Myocardial infarction [Unknown]
  - Sinus disorder [Not Recovered/Not Resolved]
  - Erythema [Not Recovered/Not Resolved]
  - Dysphonia [Not Recovered/Not Resolved]
  - Cough [Not Recovered/Not Resolved]

NARRATIVE: CASE EVENT DATE: 20250101
